FAERS Safety Report 18013637 (Version 2)
Quarter: 2020Q3

REPORT INFORMATION
  Report Type: Spontaneous
  Country: CN (occurrence: CN)
  Receive Date: 20200713
  Receipt Date: 20200715
  Transmission Date: 20201103
  Serious: Yes (Other)
  Sender: FDA-Public Use
  Company Number: CN-PFIZER INC-2020266564

PATIENT
  Age: 24 Year
  Sex: Female
  Weight: 47 kg

DRUGS (5)
  1. SOLU?MEDROL [Suspect]
     Active Substance: METHYLPREDNISOLONE SODIUM SUCCINATE
     Indication: NEUROMYELITIS OPTICA SPECTRUM DISORDER
     Dosage: 1000 MG, 1X/DAY
     Route: 041
     Dates: start: 20200531, end: 20200531
  2. SOLU?MEDROL [Suspect]
     Active Substance: METHYLPREDNISOLONE SODIUM SUCCINATE
     Dosage: 250 MG, 1X/DAY
     Route: 041
     Dates: start: 20200604, end: 20200606
  3. SODIUM CHLORIDE. [Concomitant]
     Active Substance: SODIUM CHLORIDE
     Indication: VEHICLE SOLUTION USE
     Dosage: 500 ML, 1X/DAY
     Route: 041
     Dates: start: 20200531, end: 20200609
  4. SOLU?MEDROL [Suspect]
     Active Substance: METHYLPREDNISOLONE SODIUM SUCCINATE
     Dosage: 500 MG, 1X/DAY
     Route: 041
     Dates: start: 20200601, end: 20200603
  5. SOLU?MEDROL [Suspect]
     Active Substance: METHYLPREDNISOLONE SODIUM SUCCINATE
     Dosage: 120 MG, 1X/DAY
     Route: 041
     Dates: start: 20200607

REACTIONS (5)
  - Agitation [Recovering/Resolving]
  - Palpitations [Recovering/Resolving]
  - Hypoaesthesia [Recovering/Resolving]
  - Discomfort [Recovering/Resolving]
  - Diarrhoea [Recovering/Resolving]

NARRATIVE: CASE EVENT DATE: 20200601
